FAERS Safety Report 10015874 (Version 1)
Quarter: 2014Q1

REPORT INFORMATION
  Report Type: Report from Study
  Country: AU (occurrence: AU)
  Receive Date: 20140317
  Receipt Date: 20140317
  Transmission Date: 20141002
  Serious: Yes (Other)
  Sender: FDA-Public Use
  Company Number: AU-GLAXOSMITHKLINE-B0969104A

PATIENT
  Age: 60 Year
  Sex: Male
  Weight: 71 kg

DRUGS (11)
  1. PAZOPANIB [Suspect]
     Dosage: 600MG PER DAY
     Dates: start: 20130822, end: 20131017
  2. EVEROLIMUS [Suspect]
     Indication: METASTATIC RENAL CELL CARCINOMA
     Dosage: 10MG PER DAY
     Route: 048
     Dates: start: 20131021
  3. ATENOLOL [Concomitant]
     Indication: HYPERTENSION
     Route: 048
     Dates: start: 20130904
  4. PREGABALIN [Concomitant]
     Indication: NEURALGIA
     Route: 048
  5. OXYCONTIN [Concomitant]
     Indication: PAIN
     Dosage: 20MG TWICE PER DAY
     Route: 048
  6. KARVEZIDE [Concomitant]
     Indication: HYPERTENSION
     Dosage: 1TAB PER DAY
     Route: 048
     Dates: start: 20130904
  7. MAXOLON [Concomitant]
     Indication: PROPHYLAXIS OF NAUSEA AND VOMITING
     Dosage: 10MG FOUR TIMES PER DAY
     Route: 048
  8. MOVICOL [Concomitant]
     Indication: CONSTIPATION PROPHYLAXIS
     Dosage: 1SAC PER DAY
     Route: 048
  9. PANADOL [Concomitant]
     Indication: PAIN
     Dosage: 1G FOUR TIMES PER DAY
     Route: 048
  10. HYDROCHLOROTHIAZIDE [Concomitant]
     Indication: HYPERTENSION
     Route: 048
     Dates: start: 20130904
  11. LERCAN [Concomitant]
     Indication: HYPERTENSION
     Dosage: 20MG PER DAY
     Route: 048
     Dates: start: 20140228

REACTIONS (1)
  - Haemoglobin decreased [Recovered/Resolved]
